FAERS Safety Report 4862860-X (Version None)
Quarter: 2005Q4

REPORT INFORMATION
  Report Type: 
  Country: None (occurrence: None)
  Receive Date: 20051221
  Receipt Date: 20051207
  Transmission Date: 20060501
  Serious: Yes (Hospitalization)
  Sender: FDA-Public Use
  Company Number: SEWYE680001APR04

PATIENT
  Sex: Female

DRUGS (12)
  1. ENBREL [Suspect]
     Indication: RHEUMATOID ARTHRITIS
     Route: 058
     Dates: start: 20031113, end: 20040119
  2. FOSAMAX [Concomitant]
  3. LEVAXIN [Concomitant]
     Indication: HYPOTHYROIDISM
  4. ALVEDON [Concomitant]
  5. DOLCONTIN [Concomitant]
  6. BRUFEN [Concomitant]
  7. LACTULOSE [Concomitant]
  8. LANZOR [Concomitant]
  9. HUMALOG [Concomitant]
     Indication: DIABETES MELLITUS
  10. KALCIPOS [Concomitant]
  11. LANTUS [Concomitant]
     Indication: DIABETES MELLITUS
  12. PREDNISOLONE [Concomitant]

REACTIONS (4)
  - ALVEOLITIS FIBROSING [None]
  - MUSCULOSKELETAL DISCOMFORT [None]
  - TOTAL LUNG CAPACITY DECREASED [None]
  - VITAL CAPACITY DECREASED [None]
